FAERS Safety Report 9718978 (Version 3)
Quarter: 2014Q1

REPORT INFORMATION
  Report Type: Spontaneous
  Country: JP (occurrence: JP)
  Receive Date: 20131127
  Receipt Date: 20140131
  Transmission Date: 20141002
  Serious: Yes (Hospitalization, Other)
  Sender: FDA-Public Use
  Company Number: JP-ALLERGAN-1318517US

PATIENT
  Age: 10 Year
  Sex: Female

DRUGS (1)
  1. BOTOX [Suspect]
     Indication: TORTICOLLIS
     Dosage: 200 UNITS, SINGLE
     Route: 030
     Dates: start: 20121218, end: 20121218

REACTIONS (6)
  - Alveolar proteinosis [Not Recovered/Not Resolved]
  - Alveolar proteinosis [Unknown]
  - Cell marker increased [Unknown]
  - Oxygen saturation decreased [Unknown]
  - Wheezing [Unknown]
  - Pyrexia [Unknown]
